FAERS Safety Report 8244872-1 (Version None)
Quarter: 2012Q1

REPORT INFORMATION
  Report Type: 
  Country: None (occurrence: None)
  Receive Date: 20120329
  Receipt Date: 20110823
  Transmission Date: 20120608
  Serious: No
  Sender: FDA-Public Use
  Company Number: US-MYLANLABS-2011S1015220

PATIENT
  Age: 27 Year
  Sex: Male

DRUGS (8)
  1. PROZAC [Concomitant]
  2. FENTANYL-100 [Suspect]
     Route: 062
  3. FENTANYL-100 [Suspect]
     Dosage: QOD
     Route: 062
     Dates: start: 20110201
  4. FENTANYL-100 [Suspect]
     Route: 062
  5. PERCOCET [Concomitant]
  6. FENTANYL-100 [Suspect]
     Indication: PAIN
     Dosage: QOD
     Route: 062
     Dates: start: 20110201
  7. FENTANYL-100 [Suspect]
     Dosage: QOD
     Route: 062
     Dates: start: 20110201
  8. FENTANYL-100 [Suspect]
     Indication: BACK PAIN
     Dosage: QOD
     Route: 062
     Dates: start: 20110201

REACTIONS (3)
  - ADVERSE EVENT [None]
  - PAIN [None]
  - DRUG INEFFECTIVE [None]
